FAERS Safety Report 9247782 (Version 1)
Quarter: 2013Q2

REPORT INFORMATION
  Report Type: Spontaneous
  Country: US (occurrence: US)
  Receive Date: 20130423
  Receipt Date: 20130423
  Transmission Date: 20140414
  Serious: Yes (Disabling, Other)
  Sender: FDA-Public Use
  Company Number: US-PFIZER INC-2013124191

PATIENT
  Age: 56 Year
  Sex: Female
  Weight: 59.41 kg

DRUGS (4)
  1. CELEBREX [Suspect]
     Indication: ARTHRALGIA
     Dosage: UNK, 1X/DAY
     Route: 048
     Dates: start: 2004, end: 2004
  2. MORPHINE [Concomitant]
     Indication: PAIN
     Dosage: UNK
  3. BENADRYL [Concomitant]
     Indication: SLEEP DISORDER
     Dosage: UNK
  4. KLONOPIN [Concomitant]
     Indication: SLEEP DISORDER
     Dosage: UNK

REACTIONS (3)
  - Lyme disease [Unknown]
  - Autonomic nervous system imbalance [Unknown]
  - Nervous system disorder [Unknown]
